FAERS Safety Report 17261225 (Version 1)
Quarter: 2020Q1

REPORT INFORMATION
  Report Type: Spontaneous
  Country: BW (occurrence: BW)
  Receive Date: 20200113
  Receipt Date: 20200113
  Transmission Date: 20200409
  Serious: Yes (Other)
  Sender: FDA-Public Use
  Company Number: BW-MICRO LABS LIMITED-ML2020-00100

PATIENT
  Age: 15 Year
  Sex: Male

DRUGS (1)
  1. LAMIVUDINE, NEVIRAPINE AND ZIDOVUDINE [Suspect]
     Active Substance: LAMIVUDINE\NEVIRAPINE\ZIDOVUDINE
     Indication: HIV INFECTION

REACTIONS (1)
  - Blood HIV RNA increased [Unknown]
